FAERS Safety Report 6208747-1 (Version None)
Quarter: 2009Q2

REPORT INFORMATION
  Report Type: 
  Country: None (occurrence: None)
  Receive Date: 20090522
  Receipt Date: 20090204
  Transmission Date: 20091009
  Serious: No
  Sender: FDA-Public Use
  Company Number: 8042512

PATIENT
  Age: 69 Year
  Sex: Female
  Weight: 53 kg

DRUGS (5)
  1. CIMZIA [Suspect]
     Indication: CROHN'S DISEASE
     Dosage: 400 MG SC
     Route: 058
     Dates: start: 20081204
  2. CALCIUM [Concomitant]
  3. POTASSIUM CHLORIDE [Concomitant]
  4. IMODIUM [Concomitant]
  5. LISINOPRIL [Concomitant]

REACTIONS (2)
  - PRURITUS GENERALISED [None]
  - RASH [None]
